FAERS Safety Report 9098893 (Version 1)
Quarter: 2013Q1

REPORT INFORMATION
  Report Type: Spontaneous
  Country: BR (occurrence: BR)
  Receive Date: 20130213
  Receipt Date: 20130213
  Transmission Date: 20140127
  Serious: Yes (Death)
  Sender: FDA-Public Use
  Company Number: BR-PFIZER INC-2013054168

PATIENT
  Age: 70 Year
  Sex: Male

DRUGS (1)
  1. CELEBRA [Suspect]
     Indication: SPINAL PAIN
     Dosage: UNK
     Route: 048
     Dates: start: 20120524

REACTIONS (1)
  - Thrombosis [Fatal]
